FAERS Safety Report 4323808-X (Version None)
Quarter: 2004Q1

REPORT INFORMATION
  Report Type: 
  Country: None (occurrence: None)
  Receive Date: 20040323
  Receipt Date: 20040316
  Transmission Date: 20041129
  Serious: Yes (Other)
  Sender: FDA-Public Use
  Company Number: CIP04000536

PATIENT
  Age: 75 Year
  Sex: Male

DRUGS (1)
  1. ASACOL [Suspect]
     Indication: COLITIS ULCERATIVE
     Dosage: 1600 MG DAILY, ORAL
     Route: 048

REACTIONS (3)
  - LEUKAEMIA [None]
  - MYOCARDIAL INFARCTION [None]
  - PANCYTOPENIA [None]
